FAERS Safety Report 8834373 (Version 3)
Quarter: 2013Q1

REPORT INFORMATION
  Report Type: Report from Study
  Country: US (occurrence: US)
  Receive Date: 20121010
  Receipt Date: 20130227
  Transmission Date: 20140127
  Serious: No
  Sender: FDA-Public Use
  Company Number: US-VERTEX PHARMACEUTICAL INC.-2012-022080

PATIENT
  Age: 56 Year
  Sex: Female
  Weight: 61 kg

DRUGS (22)
  1. VX-950 (TELAPREVIR) [Suspect]
     Indication: HEPATITIS C
     Dosage: 750 MG, TID
     Route: 048
     Dates: start: 20120919, end: 20121211
  2. PEGASYS [Suspect]
     Indication: HEPATITIS C
     Dosage: 180 ?G, QW
     Route: 058
     Dates: start: 20120919
  3. PEGASYS [Suspect]
     Dosage: 135 ?G, QW
     Route: 058
     Dates: start: 201211
  4. PEGASYS [Suspect]
     Dosage: 90 ?G, QW
     Route: 058
     Dates: start: 201212
  5. RIBAVIRIN [Suspect]
     Indication: HEPATITIS C
     Dosage: 600 MG AM, 400 MG PM
     Route: 048
     Dates: start: 20120919
  6. RIBAVIRIN [Suspect]
     Dosage: 400 MG AM, 200 MG PM
     Route: 048
     Dates: start: 20120922
  7. MULTIVITAMIN [Concomitant]
  8. CORAL  CALCIUM [Concomitant]
     Route: 048
  9. VITAMIN C [Concomitant]
     Dosage: 500 MG, UNK
  10. OMEGA COMBINATION [Concomitant]
  11. IBUPROFEN [Concomitant]
     Dosage: 200 MG, UNK
  12. DOXEPIN [Concomitant]
     Dosage: 75 MG, UNK
     Route: 048
  13. TYLENOL [Concomitant]
     Dosage: 325 MG, UNK
  14. RANITIDINE [Concomitant]
     Dosage: 150 MG, UNK
  15. ANTACID [Concomitant]
  16. PEPCID [Concomitant]
     Dosage: 20 MG, UNK
  17. BENADRYL [Concomitant]
     Dosage: 25 MG, UNK
  18. ZYRTEC ALLERGY [Concomitant]
     Dosage: 10 MG, UNK
     Route: 048
  19. MARINOL [Concomitant]
     Dosage: 10 MG, UNK
     Route: 048
  20. TRIAMCINOLON [Concomitant]
     Dosage: 0.025 UNK, UNK
  21. DEXILANT [Concomitant]
     Dosage: 30 MG, UNK
     Route: 048
  22. DOXEPIN HCL [Concomitant]
     Dosage: 75 MG, UNK
     Route: 048

REACTIONS (28)
  - Headache [Recovered/Resolved]
  - Sinus congestion [Recovered/Resolved]
  - Paraesthesia [Recovered/Resolved]
  - Joint swelling [Unknown]
  - Pyrexia [Recovered/Resolved]
  - Flat affect [Recovered/Resolved]
  - Visual impairment [Recovered/Resolved]
  - Tongue ulceration [Unknown]
  - Ear swelling [Unknown]
  - Weight fluctuation [Recovered/Resolved]
  - Skin exfoliation [Recovered/Resolved]
  - Parosmia [Recovered/Resolved]
  - Oral pain [Unknown]
  - Stomatitis [Unknown]
  - Dry skin [Recovered/Resolved]
  - Chills [Recovered/Resolved]
  - Feeling abnormal [Recovered/Resolved]
  - Alopecia [Not Recovered/Not Resolved]
  - Fatigue [Recovered/Resolved]
  - Oedema peripheral [Recovered/Resolved]
  - Swelling face [Recovered/Resolved]
  - Rash generalised [Recovered/Resolved]
  - Anaemia [Recovered/Resolved]
  - Anal pruritus [Recovered/Resolved]
  - Dysgeusia [Recovered/Resolved]
  - Nausea [Recovered/Resolved]
  - Pruritus [Recovered/Resolved]
  - Anorectal discomfort [Recovered/Resolved]
